FAERS Safety Report 6887725-3 (Version None)
Quarter: 2010Q3

REPORT INFORMATION
  Report Type: 
  Country: None (occurrence: None)
  Receive Date: 20100730
  Receipt Date: 20100720
  Transmission Date: 20110219
  Serious: Yes (Other)
  Sender: FDA-Public Use
  Company Number: US-ROCHE-685911

PATIENT
  Sex: Female
  Weight: 54.4 kg

DRUGS (3)
  1. AVASTIN [Suspect]
     Indication: NON-SMALL CELL LUNG CANCER METASTATIC
     Route: 042
     Dates: start: 20090609, end: 20100101
  2. ZOMETA [Concomitant]
  3. ERBITUX [Concomitant]
     Dates: start: 20090601, end: 20100201

REACTIONS (2)
  - METASTASIS [None]
  - SPEECH DISORDER [None]
